FAERS Safety Report 6760348-2 (Version None)
Quarter: 2010Q2

REPORT INFORMATION
  Report Type: 
  Country: None (occurrence: None)
  Receive Date: 20100528
  Receipt Date: 20090108
  Transmission Date: 20101027
  Serious: No
  Sender: FDA-Public Use
  Company Number: 2009-01000

PATIENT
  Sex: Female
  Weight: 63.5036 kg

DRUGS (1)
  1. ZICAM COLD REMEDY GEL SWABS [Suspect]
     Dosage: QID X 2 DAYS
     Dates: start: 20090106, end: 20090108

REACTIONS (2)
  - AGEUSIA [None]
  - ANOSMIA [None]
